FAERS Safety Report 4365662-6 (Version None)
Quarter: 2004Q2

REPORT INFORMATION
  Report Type: 
  Country: None (occurrence: None)
  Receive Date: 20040521
  Receipt Date: 20040505
  Transmission Date: 20050107
  Serious: Yes (Hospitalization)
  Sender: FDA-Public Use
  Company Number: 2003-06116

PATIENT
  Age: 43 Year
  Sex: Male
  Weight: 58.5 kg

DRUGS (6)
  1. TENOFOVIR DISOPROXIL FUMARATE (TENOFOVIR DISOPROXIL FUMARATE) [Suspect]
     Indication: HIV INFECTION
     Dosage: 300 MG, ONCE A DAY, ORAL
     Route: 048
     Dates: start: 20030325
  2. 3TC (LAMIVUDINE) [Concomitant]
  3. EFAVIRENZ (EFAVIRENZ) [Concomitant]
  4. FENOFIBRATE [Concomitant]
  5. ZOPLICONE (ZOPICLONE) [Concomitant]
  6. DIPROBASE (DIPROBASE CREAM) [Concomitant]

REACTIONS (2)
  - DIARRHOEA [None]
  - WEIGHT DECREASED [None]
